FAERS Safety Report 15295719 (Version 1)
Quarter: 2018Q3

REPORT INFORMATION
  Report Type: Spontaneous
  Country: US (occurrence: US)
  Receive Date: 20180820
  Receipt Date: 20180820
  Transmission Date: 20181010
  Serious: No
  Sender: FDA-Public Use
  Company Number: US-SA-2018SA225938

PATIENT
  Sex: Male

DRUGS (4)
  1. ALIROCUMAB PREFILLED PEN [Suspect]
     Active Substance: ALIROCUMAB
     Indication: ANGINA PECTORIS
     Dosage: 75 MG, QOW
     Route: 058
     Dates: start: 20180712, end: 20180803
  2. PRALUENT [Suspect]
     Active Substance: ALIROCUMAB
     Indication: ANGINA PECTORIS
     Dosage: 75 MG, QOW
     Route: 058
     Dates: start: 20180712, end: 20180803
  3. ALIROCUMAB PREFILLED PEN [Suspect]
     Active Substance: ALIROCUMAB
     Indication: HYPERLIPIDAEMIA
  4. PRALUENT [Suspect]
     Active Substance: ALIROCUMAB
     Indication: HYPERLIPIDAEMIA

REACTIONS (3)
  - Oedema [Recovered/Resolved]
  - Condition aggravated [Recovered/Resolved]
  - Joint range of motion decreased [Recovered/Resolved]
